FAERS Safety Report 9633096 (Version 1)
Quarter: 2013Q4

REPORT INFORMATION
  Report Type: Spontaneous
  Country: CA (occurrence: CA)
  Receive Date: 20131018
  Receipt Date: 20131018
  Transmission Date: 20140711
  Serious: Yes (Other)
  Sender: FDA-Public Use
  Company Number: CA-ASTRAZENECA-2012SE61018

PATIENT
  Sex: Male

DRUGS (2)
  1. NEXIUM [Suspect]
     Route: 048
     Dates: start: 2008
  2. NEXIUM [Suspect]
     Dosage: GENERIC
     Route: 048

REACTIONS (2)
  - Oesophageal rupture [Unknown]
  - Drug ineffective [Unknown]
